FAERS Safety Report 5808215-2 (Version None)
Quarter: 2008Q3

REPORT INFORMATION
  Report Type: 
  Country: None (occurrence: None)
  Receive Date: 20080709
  Receipt Date: 20080623
  Transmission Date: 20090109
  Serious: Yes (Hospitalization)
  Sender: FDA-Public Use
  Company Number: 2008BI008099

PATIENT
  Age: 33 Year
  Sex: Female

DRUGS (1)
  1. TYSABRI [Suspect]
     Indication: MULTIPLE SCLEROSIS
     Dosage: 300 MG; QM; IV
     Route: 042
     Dates: start: 20071010, end: 20080212

REACTIONS (4)
  - COLOSTOMY [None]
  - DECUBITUS ULCER [None]
  - ILL-DEFINED DISORDER [None]
  - INFECTED SKIN ULCER [None]
